FAERS Safety Report 23198443 (Version 1)
Quarter: 2023Q4

REPORT INFORMATION
  Report Type: Spontaneous
  Country: IN (occurrence: IN)
  Receive Date: 20231117
  Receipt Date: 20231117
  Transmission Date: 20240109
  Serious: Yes (Other)
  Sender: FDA-Public Use
  Company Number: IN-PFIZER INC-PV202300159954

PATIENT
  Age: 63 Year
  Sex: Female
  Weight: 51.1 kg

DRUGS (2)
  1. DACOMITINIB [Suspect]
     Active Substance: DACOMITINIB
     Dosage: 30 MG OD
     Route: 048
  2. ZA [Concomitant]
     Dosage: (IN 100 ML NS OVER 20 MIN),3 MONTHLY

REACTIONS (8)
  - Pathological fracture [Unknown]
  - Joint arthroplasty [Unknown]
  - Rash [Recovered/Resolved]
  - Blood pressure increased [Unknown]
  - Heart rate increased [Unknown]
  - Ocular hyperaemia [Unknown]
  - Pain [Not Recovered/Not Resolved]
  - Neoplasm progression [Unknown]

NARRATIVE: CASE EVENT DATE: 20231020
